FAERS Safety Report 6375586-0 (Version None)
Quarter: 2009Q3

REPORT INFORMATION
  Report Type: 
  Country: None (occurrence: None)
  Receive Date: 20090924
  Receipt Date: 20090911
  Transmission Date: 20100115
  Serious: Yes (Other)
  Sender: FDA-Public Use
  Company Number: CN-MERCK-0909CHN00031

PATIENT
  Age: 33 Year
  Sex: Female

DRUGS (1)
  1. PRIMAXIN [Suspect]
     Indication: PYREXIA
     Route: 065
     Dates: start: 20060101

REACTIONS (3)
  - ABORTION INDUCED [None]
  - DRUG EXPOSURE DURING PREGNANCY [None]
  - DRUG INEFFECTIVE [None]
